FAERS Safety Report 19656888 (Version 1)
Quarter: 2021Q3

REPORT INFORMATION
  Report Type: Spontaneous
  Country: IT (occurrence: IT)
  Receive Date: 20210804
  Receipt Date: 20210804
  Transmission Date: 20211014
  Serious: Yes (Other)
  Sender: FDA-Public Use
  Company Number: IT-TEVA-2021-IT-1938133

PATIENT
  Age: 59 Year
  Sex: Male

DRUGS (14)
  1. VINCRISTINE [Suspect]
     Active Substance: VINCRISTINE
     Indication: METASTATIC SQUAMOUS CELL CARCINOMA
  2. GEMCITABINE. [Suspect]
     Active Substance: GEMCITABINE
     Indication: METASTATIC SQUAMOUS CELL CARCINOMA
  3. CYCLOPHOSPHAMIDE. [Suspect]
     Active Substance: CYCLOPHOSPHAMIDE
     Indication: THYMIC CANCER METASTATIC
     Dosage: A MODIFIED ADOC (MADOC) SCHEME
     Route: 065
     Dates: start: 201802, end: 201807
  4. PEMBROLIZUMAB. [Suspect]
     Active Substance: PEMBROLIZUMAB
     Indication: METASTATIC SQUAMOUS CELL CARCINOMA
  5. GEMCITABINE. [Suspect]
     Active Substance: GEMCITABINE
     Indication: THYMIC CANCER METASTATIC
     Route: 065
     Dates: start: 201707, end: 201712
  6. VINCRISTINE [Suspect]
     Active Substance: VINCRISTINE
     Indication: THYMIC CANCER METASTATIC
     Dosage: A MODIFIED ADOC (MADOC) SCHEME
     Route: 065
     Dates: start: 201802, end: 201807
  7. PEMBROLIZUMAB. [Suspect]
     Active Substance: PEMBROLIZUMAB
     Indication: THYMIC CANCER METASTATIC
     Dosage: RECEIVED 18 COURSES
     Route: 065
     Dates: start: 201902, end: 202003
  8. DOXORUBICIN [Suspect]
     Active Substance: DOXORUBICIN
     Indication: THYMIC CANCER METASTATIC
     Dosage: A MODIFIED ADOC (MADOC) SCHEME
     Route: 065
     Dates: start: 201802, end: 201807
  9. CYCLOPHOSPHAMIDE. [Suspect]
     Active Substance: CYCLOPHOSPHAMIDE
     Indication: METASTATIC SQUAMOUS CELL CARCINOMA
  10. CARBOPLATIN. [Suspect]
     Active Substance: CARBOPLATIN
     Indication: METASTATIC SQUAMOUS CELL CARCINOMA
  11. PACLITAXEL. [Suspect]
     Active Substance: PACLITAXEL
     Indication: METASTATIC SQUAMOUS CELL CARCINOMA
  12. CARBOPLATIN. [Suspect]
     Active Substance: CARBOPLATIN
     Indication: THYMIC CANCER METASTATIC
     Dosage: SIX COURSES OF 3?WEEKLY; RECEIVED 6 CYCLES
     Route: 065
     Dates: start: 201610, end: 201702
  13. DOXORUBICIN [Suspect]
     Active Substance: DOXORUBICIN
     Indication: METASTATIC SQUAMOUS CELL CARCINOMA
  14. PACLITAXEL. [Suspect]
     Active Substance: PACLITAXEL
     Indication: THYMIC CANCER METASTATIC
     Dosage: SIX COURSES OF 3?WEEKLY; RECEIVED 6 CYCLES
     Route: 065
     Dates: start: 201610, end: 201702

REACTIONS (3)
  - Off label use [Unknown]
  - Left ventricular dysfunction [Recovered/Resolved]
  - Cardiac failure [Recovered/Resolved]

NARRATIVE: CASE EVENT DATE: 2018
